FAERS Safety Report 9375132 (Version 1)
Quarter: 2013Q3

REPORT INFORMATION
  Report Type: Spontaneous
  Country: CO (occurrence: CO)
  Receive Date: 20130628
  Receipt Date: 20130705
  Transmission Date: 20140515
  Serious: Yes (Other)
  Sender: FDA-Public Use
  Company Number: CO-JNJFOC-20130612236

PATIENT
  Age: 18 Year
  Sex: Male
  Weight: 54 kg

DRUGS (6)
  1. RISPERDAL QUICKLETS [Suspect]
     Indication: SCHIZOPHRENIA
     Route: 048
     Dates: end: 20130531
  2. RISPERDAL QUICKLETS [Suspect]
     Indication: SCHIZOPHRENIA
     Route: 048
     Dates: start: 20130531, end: 20130603
  3. RISPERDAL QUICKLETS [Suspect]
     Indication: SCHIZOPHRENIA
     Route: 048
     Dates: start: 2008
  4. CLONAZEPAM [Concomitant]
     Indication: PRODUCT USED FOR UNKNOWN INDICATION
     Route: 065
  5. PEG [Concomitant]
     Route: 048
  6. ACETAMINOPHEN [Concomitant]
     Route: 048

REACTIONS (4)
  - Homicidal ideation [Unknown]
  - Self injurious behaviour [Unknown]
  - Aggression [Unknown]
  - Insomnia [Unknown]
